FAERS Safety Report 8098251-0 (Version None)
Quarter: 2012Q1

REPORT INFORMATION
  Report Type: 
  Country: None (occurrence: None)
  Receive Date: 20120128
  Receipt Date: 20110718
  Transmission Date: 20120608
  Serious: No
  Sender: FDA-Public Use
  Company Number: US-ABBOTT-11P-163-0840266-00

PATIENT
  Age: 61 Year
  Sex: Female

DRUGS (7)
  1. LOVAZA [Concomitant]
     Indication: PRODUCT USED FOR UNKNOWN INDICATION
     Dosage: DAILY
  2. HUMIRA [Suspect]
     Indication: ANKYLOSING SPONDYLITIS
     Dates: start: 20110504
  3. FLEXERIL [Concomitant]
     Indication: MUSCLE SPASMS
     Dosage: DAILY
  4. PROBIOTIC [Concomitant]
     Indication: PRODUCT USED FOR UNKNOWN INDICATION
     Dosage: DAILY
  5. FOLIC ACID [Concomitant]
     Indication: PRODUCT USED FOR UNKNOWN INDICATION
     Dosage: DAILY
  6. PREMARIN [Concomitant]
     Indication: PRODUCT USED FOR UNKNOWN INDICATION
     Dosage: INTRAVAGINAL NIGHTLY
  7. CYMBALTA [Concomitant]
     Indication: FIBROMYALGIA
     Dosage: DAILY

REACTIONS (4)
  - FATIGUE [None]
  - EYE HAEMORRHAGE [None]
  - ARTHRALGIA [None]
  - EYE PAIN [None]
